FAERS Safety Report 14641902 (Version 2)
Quarter: 2018Q1

REPORT INFORMATION
  Report Type: Spontaneous
  Country: FI (occurrence: FI)
  Receive Date: 20180315
  Receipt Date: 20180319
  Transmission Date: 20180509
  Serious: Yes (Other)
  Sender: FDA-Public Use
  Company Number: FI-BIOGEN-2018BI00539084

PATIENT
  Sex: Female

DRUGS (1)
  1. TECFIDERA [Suspect]
     Active Substance: DIMETHYL FUMARATE
     Indication: PRODUCT USED FOR UNKNOWN INDICATION
     Dosage: USED FOR 3 WEEKS; INITIAL DOSE
     Route: 065

REACTIONS (2)
  - Underdose [Unknown]
  - Type 1 diabetes mellitus [Unknown]
